FAERS Safety Report 6102981-7 (Version None)
Quarter: 2009Q1

REPORT INFORMATION
  Report Type: 
  Country: None (occurrence: None)
  Receive Date: 20090305
  Receipt Date: 20090223
  Transmission Date: 20090719
  Serious: Yes (Hospitalization)
  Sender: FDA-Public Use
  Company Number: PHBS2009ES00877

PATIENT
  Age: 62 Year
  Sex: Female

DRUGS (1)
  1. DICLOFENAC [Suspect]
     Dosage: UNK
     Route: 054

REACTIONS (10)
  - ANAEMIA [None]
  - COLONOSCOPY ABNORMAL [None]
  - HAEMATOMA [None]
  - INFLUENZA LIKE ILLNESS [None]
  - INTERNATIONAL NORMALISED RATIO INCREASED [None]
  - INTESTINAL PERFORATION [None]
  - LACERATION [None]
  - OVERDOSE [None]
  - PROCTALGIA [None]
  - RECTAL HAEMORRHAGE [None]
